FAERS Safety Report 4538147-1 (Version None)
Quarter: 2004Q4

REPORT INFORMATION
  Report Type: 
  Country: None (occurrence: None)
  Receive Date: 20041221
  Receipt Date: 20041211
  Transmission Date: 20050328
  Serious: Yes (Life-Threatening)
  Sender: FDA-Public Use
  Company Number: TIF2004A00046

PATIENT
  Age: 72 Year
  Sex: Female

DRUGS (6)
  1. ACTOS [Suspect]
     Indication: DIABETES MELLITUS
     Dosage: 30 MG (30 MG, 1 IN 1 D) ORAL
     Route: 048
     Dates: start: 20041112, end: 20041118
  2. CARDIRENE (ACETYLSALICYLATE LYSINE) [Concomitant]
  3. APROVEL (IRBESARTAN) [Concomitant]
  4. COAPROVEL (KAREVA HC) [Concomitant]
  5. GLUCOPHAGE [Concomitant]
  6. OFTIMOLO [Concomitant]

REACTIONS (4)
  - CHOKING SENSATION [None]
  - SALIVARY HYPERSECRETION [None]
  - STRIDOR [None]
  - THROAT TIGHTNESS [None]
